FAERS Safety Report 5564078-4 (Version None)
Quarter: 2007Q4

REPORT INFORMATION
  Report Type: 
  Country: None (occurrence: None)
  Receive Date: 20071217
  Receipt Date: 20071203
  Transmission Date: 20080405
  Serious: Yes (Hospitalization, Other)
  Sender: FDA-Public Use
  Company Number: GB-RANBAXY-2007RR-11824

PATIENT

DRUGS (9)
  1. FUROSEMIDE TABLETS BP 40MG [Suspect]
     Indication: DIURETIC THERAPY
     Dosage: 40 MG, UNK
     Route: 065
  2. ACOMPLIA [Suspect]
     Indication: WEIGHT DECREASED
     Dosage: 20 MG, UNK
     Route: 048
     Dates: start: 20070727, end: 20071029
  3. ADCAL-D3 [Concomitant]
     Dosage: 1 DF, BID
     Route: 066
  4. DISPERSIBLE ASPIRIN 75MG TABLETS BP [Concomitant]
     Indication: LEFT VENTRICULAR DYSFUNCTION
     Dosage: 75 MG, QD
     Route: 065
  5. DOXAZOSIN 4MG TABLETS [Concomitant]
     Indication: HYPERTENSION
     Dosage: 4 MG, BID
     Route: 065
  6. FELODIPINE [Concomitant]
     Indication: BLOOD PRESSURE
     Dosage: 4 MG, BID
     Route: 065
  7. FERROUS SULPHATE 200MG TABLETS [Concomitant]
     Indication: ANAEMIA
     Dosage: 200 MG, UNK
     Route: 048
  8. PARACODOL [Concomitant]
     Indication: ANALGESIA
     Dosage: UNK
  9. SIMVASTATIN [Concomitant]
     Indication: BLOOD CHOLESTEROL
     Dosage: 40 MG, UNK
     Route: 048

REACTIONS (4)
  - BLOOD POTASSIUM DECREASED [None]
  - DIZZINESS [None]
  - MALAISE [None]
  - VOMITING [None]
